FAERS Safety Report 5484673-0 (Version None)
Quarter: 2007Q4

REPORT INFORMATION
  Report Type: 
  Country: None (occurrence: None)
  Receive Date: 20071012
  Receipt Date: 20071003
  Transmission Date: 20080405
  Serious: Yes (Other)
  Sender: FDA-Public Use
  Company Number: AT-PFIZER INC-2007076594

PATIENT
  Sex: Male

DRUGS (2)
  1. DEPOCON [Suspect]
     Indication: CONTRACEPTION
     Route: 064
     Dates: start: 20040314, end: 20040314
  2. DEPOCON [Suspect]
     Route: 064
     Dates: start: 20040829, end: 20040829

REACTIONS (3)
  - DRUG EXPOSURE DURING PREGNANCY [None]
  - HYDRONEPHROSIS [None]
  - SPEECH DISORDER DEVELOPMENTAL [None]
